FAERS Safety Report 6138562-9 (Version None)
Quarter: 2009Q1

REPORT INFORMATION
  Report Type: 
  Country: None (occurrence: None)
  Receive Date: 20090327
  Receipt Date: 20090316
  Transmission Date: 20090719
  Serious: Yes (Hospitalization)
  Sender: FDA-Public Use
  Company Number: 1000005390

PATIENT
  Age: 79 Year
  Sex: Female

DRUGS (5)
  1. CITALOPRAM HYDROBROMIDE [Suspect]
     Indication: DEPRESSION
     Dosage: 20 MG (20 MG, 1 IN 1 D), ORAL
     Route: 048
  2. KARDEGIC (POWDER) [Suspect]
     Indication: THROMBOSIS
     Dosage: 160 MG (160 MG, 1 IN 1 D), ORAL
     Route: 048
     Dates: end: 20081125
  3. AMLODIPINE BESYLATE [Concomitant]
  4. COZAAR [Concomitant]
  5. NOVOMIX (INJECTION) [Concomitant]

REACTIONS (3)
  - FALL [None]
  - HAEMATOMA INFECTION [None]
  - PROTEUS INFECTION [None]
